FAERS Safety Report 9152280 (Version 1)
Quarter: 2013Q1

REPORT INFORMATION
  Report Type: Report from Study
  Country: VE (occurrence: VE)
  Receive Date: 20130308
  Receipt Date: 20130308
  Transmission Date: 20140127
  Serious: Yes (Hospitalization, Other)
  Sender: FDA-Public Use
  Company Number: VE-ABBOTT-13P-178-1057866-00

PATIENT
  Sex: Male
  Weight: 103 kg

DRUGS (3)
  1. HUMIRA [Suspect]
     Indication: PSORIASIS
     Route: 058
     Dates: start: 20091214, end: 201103
  2. METHOTREXATE [Concomitant]
     Indication: LYMPHOMA
     Dosage: VO, C-8 DAYS
     Dates: start: 201211
  3. CALCORT [Concomitant]
     Indication: PSORIASIS
     Dosage: VO. C-2 DAYS

REACTIONS (2)
  - Granuloma [Recovered/Resolved with Sequelae]
  - Mycosis fungoides [Unknown]
